FAERS Safety Report 22031297 (Version 1)
Quarter: 2023Q1

REPORT INFORMATION
  Report Type: Spontaneous
  Country: FR (occurrence: FR)
  Receive Date: 20230223
  Receipt Date: 20230223
  Transmission Date: 20230418
  Serious: Yes (Other)
  Sender: FDA-Public Use
  Company Number: FR-SUN PHARMACEUTICAL INDUSTRIES LTD-2023RR-379665

PATIENT
  Age: 81 Year
  Sex: Female

DRUGS (3)
  1. SIMVASTATIN [Interacting]
     Active Substance: SIMVASTATIN
     Indication: Dyslipidaemia
     Dosage: FOR OVER TWENTY YEARS
     Route: 065
  2. PALBOCICLIB [Interacting]
     Active Substance: PALBOCICLIB
     Indication: Breast cancer metastatic
     Dosage: 125 MILLIGRAM, DAILY, 21 DAYS/28
  3. EZETIMIBE\SIMVASTATIN [Suspect]
     Active Substance: EZETIMIBE\SIMVASTATIN
     Indication: Dyslipidaemia
     Dosage: 10/20 MILLIGRAM
     Route: 065

REACTIONS (2)
  - Drug interaction [Unknown]
  - Rhabdomyolysis [Recovered/Resolved]
